FAERS Safety Report 6507741-0 (Version None)
Quarter: 2009Q4

REPORT INFORMATION
  Report Type: 
  Country: None (occurrence: None)
  Receive Date: 20091221
  Receipt Date: 20091214
  Transmission Date: 20100525
  Serious: Yes (Life-Threatening)
  Sender: FDA-Public Use
  Company Number: FR-SANOFI-AVENTIS-2009SA008428

PATIENT
  Age: 80 Year
  Sex: Male

DRUGS (8)
  1. LASILIX FAIBLE [Suspect]
     Route: 048
     Dates: end: 20090926
  2. CORDARONE [Suspect]
     Indication: ATRIAL FIBRILLATION
     Route: 048
     Dates: end: 20090926
  3. NEBILOX [Suspect]
     Route: 048
     Dates: start: 20090101, end: 20090901
  4. HEMIGOXINE NATIVELLE [Suspect]
     Indication: ATRIAL FIBRILLATION
     Route: 048
     Dates: end: 20090926
  5. ALLOPURINOL [Suspect]
     Indication: HYPERURICAEMIA
     Route: 048
     Dates: end: 20090926
  6. COTAREG ^NOVARTIS^ [Concomitant]
     Indication: DRUG USE FOR UNKNOWN INDICATION
  7. TAHOR [Concomitant]
     Indication: DRUG USE FOR UNKNOWN INDICATION
  8. DIFFU K [Concomitant]
     Indication: DRUG USE FOR UNKNOWN INDICATION

REACTIONS (3)
  - ELECTROCARDIOGRAM QT PROLONGED [None]
  - SYNCOPE [None]
  - TORSADE DE POINTES [None]
